FAERS Safety Report 24444213 (Version 1)
Quarter: 2024Q4

REPORT INFORMATION
  Report Type: Report from Study
  Country: ZA (occurrence: ZA)
  Receive Date: 20241016
  Receipt Date: 20241016
  Transmission Date: 20250115
  Serious: Yes (Other)
  Sender: ROCHE
  Company Number: ZA-ROCHE-10000100460

PATIENT
  Age: 27 Year
  Sex: Female

DRUGS (1)
  1. OCREVUS [Suspect]
     Active Substance: OCRELIZUMAB
     Indication: Primary progressive multiple sclerosis
     Dosage: THEREAFTER 600MG EVERY 6 MONTHS
     Route: 042
     Dates: start: 20231018

REACTIONS (7)
  - Gait disturbance [Unknown]
  - Hypokinesia [Unknown]
  - Multiple sclerosis [Unknown]
  - Demyelination [Unknown]
  - Magnetic resonance imaging head abnormal [Unknown]
  - Paranasal cyst [Unknown]
  - Nervous system disorder [Unknown]
